FAERS Safety Report 5081678-9 (Version None)
Quarter: 2006Q3

REPORT INFORMATION
  Report Type: 
  Country: None (occurrence: None)
  Receive Date: 20060816
  Receipt Date: 20060724
  Transmission Date: 20061208
  Serious: Yes (Hospitalization, Other)
  Sender: FDA-Public Use
  Company Number: US-BRISTOL-MYERS SQUIBB COMPANY-13453196

PATIENT
  Age: 50 Year
  Sex: Male

DRUGS (18)
  1. ERBITUX [Suspect]
     Indication: OESOPHAGEAL ADENOCARCINOMA
     Route: 042
     Dates: start: 20060726, end: 20060726
  2. ERBITUX [Suspect]
     Dosage: 250 MG/M2 WEEK 2,3,4,5,6
     Route: 042
     Dates: start: 20060621
  3. PACLITAXEL [Suspect]
     Indication: OESOPHAGEAL ADENOCARCINOMA
     Route: 042
     Dates: start: 20060726, end: 20060726
  4. CARBOPLATIN [Suspect]
     Indication: OESOPHAGEAL ADENOCARCINOMA
     Route: 042
     Dates: start: 20060621, end: 20060726
  5. RADIATION THERAPY [Suspect]
     Indication: OESOPHAGEAL ADENOCARCINOMA
     Dates: start: 20060621, end: 20060801
  6. AMOXICILLIN [Concomitant]
     Indication: INFECTION
     Dates: start: 20060714
  7. FLAGYL [Concomitant]
     Indication: INFECTION
     Dates: start: 20060714
  8. QUINAPRIL [Concomitant]
  9. ALLOPURINOL [Concomitant]
  10. GEMFIBROZIL [Concomitant]
  11. PROTONIX [Concomitant]
  12. TOPROL-XL [Concomitant]
  13. LIPITOR [Concomitant]
     Dosage: TAKEN AT NIGHT
  14. AMITRIPTYLINE HCL [Concomitant]
     Dosage: TAKEN AT NIGHT
  15. OXYCODONE HCL [Concomitant]
  16. AMBIEN [Concomitant]
  17. COMPAZINE [Concomitant]
  18. ROXICET [Concomitant]

REACTIONS (5)
  - COUGH [None]
  - DEHYDRATION [None]
  - DIZZINESS [None]
  - ORTHOSTATIC HYPOTENSION [None]
  - PYREXIA [None]
